FAERS Safety Report 7914386-4 (Version None)
Quarter: 2011Q4

REPORT INFORMATION
  Report Type: 
  Country: None (occurrence: None)
  Receive Date: 20111110
  Receipt Date: 20111027
  Transmission Date: 20120403
  Serious: Yes (Death)
  Sender: FDA-Public Use
  Company Number: 2011NA000096

PATIENT
  Age: 27 Year
  Sex: Female

DRUGS (4)
  1. DICLOFENAC SODIUM [Suspect]
     Indication: PRODUCT USED FOR UNKNOWN INDICATION
     Dosage: 2,800MG;PO
     Route: 048
  2. IBUPROFEN [Suspect]
     Indication: PRODUCT USED FOR UNKNOWN INDICATION
     Dosage: 7,000 MG;PO
     Route: 048
  3. CO-DYDRAMOL (PARAMOL-118) [Suspect]
     Indication: PRODUCT USED FOR UNKNOWN INDICATION
     Dosage: 16 TABLETS;PO
     Route: 048
  4. FERROUS SULFATE TAB [Suspect]
     Indication: PRODUCT USED FOR UNKNOWN INDICATION
     Dosage: 86 TABLETS;PO
     Route: 048

REACTIONS (9)
  - HAEMATEMESIS [None]
  - MULTIPLE DRUG OVERDOSE [None]
  - NAUSEA [None]
  - MULTI-ORGAN FAILURE [None]
  - GENERAL PHYSICAL HEALTH DETERIORATION [None]
  - ACIDOSIS [None]
  - VOMITING [None]
  - HEPATIC FAILURE [None]
  - ANAEMIA [None]
